FAERS Safety Report 20618199 (Version 1)
Quarter: 2022Q1

REPORT INFORMATION
  Report Type: Spontaneous
  Country: US (occurrence: US)
  Receive Date: 20220321
  Receipt Date: 20220321
  Transmission Date: 20220424
  Serious: Yes (Death, Hospitalization, Other)
  Sender: FDA-Public Use
  Company Number: US-GILEAD-2022-0574366

PATIENT
  Age: 89 Year
  Sex: Male

DRUGS (2)
  1. TECARTUS [Suspect]
     Active Substance: BREXUCABTAGENE AUTOLEUCEL
     Indication: Product used for unknown indication
     Dosage: UNK
     Route: 042
     Dates: start: 20210309, end: 20210309
  2. SOLU-MEDROL [Concomitant]
     Active Substance: METHYLPREDNISOLONE SODIUM SUCCINATE
     Dosage: 1 G FOR 3 DAYS PRIOR TO LD CHEMO

REACTIONS (10)
  - Cardiac disorder [Fatal]
  - Sepsis [Fatal]
  - Failure to thrive [Unknown]
  - Enterococcal bacteraemia [Unknown]
  - Urinary tract infection staphylococcal [Unknown]
  - Staphylococcal bacteraemia [Unknown]
  - Haemophagocytic lymphohistiocytosis [Unknown]
  - Atrial fibrillation [Recovered/Resolved]
  - Immune effector cell-associated neurotoxicity syndrome [Unknown]
  - Cytokine release syndrome [Unknown]

NARRATIVE: CASE EVENT DATE: 20210316
